FAERS Safety Report 15540740 (Version 33)
Quarter: 2021Q2

REPORT INFORMATION
  Report Type: Report from Study
  Country: CN (occurrence: CN)
  Receive Date: 20181023
  Receipt Date: 20210428
  Transmission Date: 20210716
  Serious: Yes (Hospitalization)
  Sender: FDA-Public Use
  Company Number: CN-ROCHE-2201634

PATIENT
  Age: 61 Year
  Sex: Female
  Weight: 56.5 kg

DRUGS (63)
  1. PALONOSETRON HYDROCHLORIDE. [Concomitant]
     Active Substance: PALONOSETRON HYDROCHLORIDE
     Indication: PROPHYLAXIS OF NAUSEA AND VOMITING
     Dates: start: 20180930, end: 20181003
  2. LIDOCAINE HYDROCHLORIDE. [Concomitant]
     Active Substance: LIDOCAINE HYDROCHLORIDE
     Indication: LOCAL ANAESTHESIA
     Dates: start: 20180925, end: 20180925
  3. GLUCOSE [Concomitant]
     Active Substance: DEXTROSE
     Indication: NUTRITIONAL SUPPLEMENTATION
     Dates: start: 20181029, end: 20181101
  4. GLUCOSE [Concomitant]
     Active Substance: DEXTROSE
     Dates: start: 20190111, end: 20190113
  5. PROMETHAZINE [Concomitant]
     Active Substance: PROMETHAZINE HYDROCHLORIDE
     Dates: start: 20190204, end: 20190204
  6. ATEZOLIZUMAB. [Suspect]
     Active Substance: ATEZOLIZUMAB
     Indication: OVARIAN CANCER STAGE III
     Dosage: ON 30/SEP/2018, SHE RECEIVED HER MOST RECENT DOSE MG OF BLINDED ATEZOLIZUMAB PRIOR TO FIRST EPISODE
     Route: 041
     Dates: start: 20180930
  7. CARBOPLATIN. [Suspect]
     Active Substance: CARBOPLATIN
     Indication: OVARIAN CANCER STAGE III
     Dosage: ON 30/SEP/2018, SHE RECEIVED HER MOST RECENT DOSE 732.3 MG OF CARBOPLATIN PRIOR TO FIRST EPISODE OF
     Route: 042
     Dates: start: 20180930
  8. RECOMBINANT HUMAN THROMBOPOIETIN [Concomitant]
     Active Substance: THROMBOPOIETIN
     Dates: start: 20181015, end: 20181022
  9. PALONOSETRON. [Concomitant]
     Active Substance: PALONOSETRON HYDROCHLORIDE
     Dates: start: 20190111, end: 20190113
  10. IODIXANOL. [Concomitant]
     Active Substance: IODIXANOL
     Dates: start: 20190203, end: 20190203
  11. PROMETHAZINE HYDROCHLORIDE. [Concomitant]
     Active Substance: PROMETHAZINE HYDROCHLORIDE
     Dates: start: 20181018, end: 20181018
  12. EPHEDRA [Concomitant]
     Active Substance: EPHEDRA
     Dates: start: 20190702
  13. CALAMINE [Concomitant]
     Active Substance: CALAMINE\FERRIC OXIDE RED\ZINC OXIDE
     Indication: RASH
     Dates: start: 20181111, end: 20181114
  14. GLYCYRRHIZIN [Concomitant]
     Active Substance: GLYCYRRHIZIN
     Dates: start: 20181111, end: 20181118
  15. PALONOSETRON HYDROCHLORIDE. [Concomitant]
     Active Substance: PALONOSETRON HYDROCHLORIDE
     Dates: start: 20190110, end: 20190110
  16. CIMETIDINE [Concomitant]
     Active Substance: CIMETIDINE
     Dates: start: 20190111, end: 20190111
  17. DIPHENHYDRAMINE HYDROCHLORIDE. [Concomitant]
     Active Substance: DIPHENHYDRAMINE HYDROCHLORIDE
     Indication: ALLERGY PROPHYLAXIS
     Dates: start: 20180930, end: 20180930
  18. DIPHENHYDRAMINE HYDROCHLORIDE. [Concomitant]
     Active Substance: DIPHENHYDRAMINE HYDROCHLORIDE
     Dates: start: 20190111, end: 20190111
  19. REHMANNIA [Concomitant]
     Dates: start: 20190702
  20. LICORICE. [Concomitant]
     Active Substance: LICORICE
     Dates: start: 20190702
  21. PACLITAXEL. [Suspect]
     Active Substance: PACLITAXEL
     Indication: OVARIAN CANCER STAGE III
     Dosage: ON 30/SEP/2018, SHE RECEIVED HER MOST RECENT DOSE 270.6MG OF PACLITAXEL PRIOR TO FIRST EPISODE OF MY
     Route: 042
     Dates: start: 20180930
  22. LORATADINE. [Concomitant]
     Active Substance: LORATADINE
     Indication: RASH
     Dates: start: 20180924, end: 20180926
  23. COMPOUND SODIUM CHLORIDE [Concomitant]
     Indication: NUTRITIONAL SUPPLEMENTATION
     Dates: start: 20181029, end: 20181101
  24. DEXAMETHASONE. [Concomitant]
     Active Substance: DEXAMETHASONE
     Route: 048
     Dates: start: 20181029, end: 20181030
  25. CINNAMON. [Concomitant]
     Active Substance: CINNAMON
     Dates: start: 20190702
  26. GADOPENTETATE DIMEGLUMINE. [Concomitant]
     Active Substance: GADOPENTETATE DIMEGLUMINE
     Dates: start: 20181024, end: 20181024
  27. OMEPRAZOLE SODIUM [Concomitant]
     Active Substance: OMEPRAZOLE SODIUM
     Dates: start: 20180929, end: 20181101
  28. OMEPRAZOLE SODIUM [Concomitant]
     Active Substance: OMEPRAZOLE SODIUM
     Dates: start: 20181029, end: 20181101
  29. DEXAMETHASONE. [Concomitant]
     Active Substance: DEXAMETHASONE
     Dates: start: 20190204, end: 20190204
  30. DEXAMETHASONE. [Concomitant]
     Active Substance: DEXAMETHASONE
     Route: 055
     Dates: start: 20181016, end: 20181016
  31. DEXAMETHASONE. [Concomitant]
     Active Substance: DEXAMETHASONE
     Dosage: DOSE?19.5 (UNIT NOT REPORTED)
     Route: 048
     Dates: start: 20181028, end: 20181029
  32. CIMETIDINE [Concomitant]
     Active Substance: CIMETIDINE
     Dates: start: 20180930, end: 20180930
  33. CIMETIDINE [Concomitant]
     Active Substance: CIMETIDINE
     Dates: start: 20181029, end: 20181029
  34. DIPHENHYDRAMINE HYDROCHLORIDE. [Concomitant]
     Active Substance: DIPHENHYDRAMINE HYDROCHLORIDE
     Dates: start: 20181029, end: 20181029
  35. PANTOPRAZOLE [Concomitant]
     Active Substance: PANTOPRAZOLE
     Dates: start: 20181112, end: 20181118
  36. RECOMBINANT HUMAN THROMBOPOIETIN [Concomitant]
     Active Substance: THROMBOPOIETIN
     Indication: PLATELET COUNT INCREASED
     Dates: start: 20180926, end: 20180928
  37. RECOMBINANT HUMAN THROMBOPOIETIN [Concomitant]
     Active Substance: THROMBOPOIETIN
     Route: 058
     Dates: start: 20181111, end: 20181117
  38. COMPOUND SODIUM CHLORIDE [Concomitant]
     Dates: start: 20180929, end: 20181003
  39. SODIUM CHLORIDE. [Concomitant]
     Active Substance: SODIUM CHLORIDE
     Indication: NUTRITIONAL SUPPLEMENTATION
     Dates: start: 20180930, end: 20181003
  40. DEXAMETHASONE. [Concomitant]
     Active Substance: DEXAMETHASONE
     Route: 055
     Dates: start: 20181018, end: 20181018
  41. DEXAMETHASONE. [Concomitant]
     Active Substance: DEXAMETHASONE
     Route: 048
     Dates: start: 20190110, end: 20190111
  42. PALONOSETRON. [Concomitant]
     Active Substance: PALONOSETRON HYDROCHLORIDE
     Indication: VOMITING
     Dates: start: 20181029, end: 20181101
  43. PROMETHAZINE [Concomitant]
     Active Substance: PROMETHAZINE HYDROCHLORIDE
     Dates: start: 20190130, end: 20190130
  44. PROMETHAZINE [Concomitant]
     Active Substance: PROMETHAZINE HYDROCHLORIDE
     Dates: start: 20181018, end: 20181018
  45. CODONOPSIS [Concomitant]
     Dates: start: 20190702
  46. ATEZOLIZUMAB. [Suspect]
     Active Substance: ATEZOLIZUMAB
     Dosage: ON 29/OCT/2018, SHE RECEIVED HER MOST RECENT DOSE MG OF BLINDED ATEZOLIZUMAB PRIOR TO SECOND EPISODE
     Route: 042
     Dates: start: 20181029
  47. PACLITAXEL. [Suspect]
     Active Substance: PACLITAXEL
     Dosage: ON 29/OCT/2018, SHE RECEIVED HER MOST RECENT DOSE 216.48 MG OF PACLITAXEL PRIOR TO SECOND EPISODE OF
     Route: 042
     Dates: start: 20181029
  48. CARBOPLATIN. [Suspect]
     Active Substance: CARBOPLATIN
     Dosage: TARGET AREA UNDER THE CURVE (AUC) OF 6  (MG/ML/MIN) ?ON 29/OCT/2018, SHE RECIVED HER MOST RECENT DOS
     Route: 042
     Dates: start: 20181029
  49. RECOMBINANT HUMAN THROMBOPOIETIN [Concomitant]
     Active Substance: THROMBOPOIETIN
     Dates: start: 20181001, end: 20181101
  50. SODIUM CHLORIDE. [Concomitant]
     Active Substance: SODIUM CHLORIDE
     Dates: start: 20181029, end: 20181029
  51. SODIUM CHLORIDE. [Concomitant]
     Active Substance: SODIUM CHLORIDE
     Dates: start: 20190111, end: 20190113
  52. PALONOSETRON HYDROCHLORIDE. [Concomitant]
     Active Substance: PALONOSETRON HYDROCHLORIDE
     Dates: start: 20181029, end: 20181101
  53. OMEPRAZOLE SODIUM [Concomitant]
     Active Substance: OMEPRAZOLE SODIUM
     Dates: start: 20190111, end: 20190113
  54. DEXAMETHASONE. [Concomitant]
     Active Substance: DEXAMETHASONE
     Indication: ALLERGY PROPHYLAXIS
     Dates: start: 20180929, end: 20180930
  55. IODIXANOL. [Concomitant]
     Active Substance: IODIXANOL
     Dates: start: 20200115, end: 20200115
  56. PROMETHAZINE HYDROCHLORIDE. [Concomitant]
     Active Substance: PROMETHAZINE HYDROCHLORIDE
     Dates: start: 20181016, end: 20181016
  57. BEVACIZUMAB. [Suspect]
     Active Substance: BEVACIZUMAB
     Indication: OVARIAN CANCER STAGE III
     Dosage: ON 29/OCT/2018, SHE RECEIVED HER MOST RECENT DOSE OF BEVACIZUMAB PRIOR TO THE SECOND EPISODE OF MYEL
     Route: 042
     Dates: start: 20181029
  58. LORATADINE. [Concomitant]
     Active Substance: LORATADINE
     Dates: start: 20181011, end: 20181014
  59. OMEPRAZOLE SODIUM [Concomitant]
     Active Substance: OMEPRAZOLE SODIUM
     Dosage: START DATE 30/SEP/2018
     Dates: start: 20180929, end: 20180930
  60. DEXAMETHASONE. [Concomitant]
     Active Substance: DEXAMETHASONE
     Dates: start: 20190130, end: 20190130
  61. PROMETHAZINE [Concomitant]
     Active Substance: PROMETHAZINE HYDROCHLORIDE
     Dates: start: 20181016, end: 20181016
  62. BUPLEURUM [Concomitant]
     Dates: start: 20190702
  63. CALAMINE [Concomitant]
     Active Substance: CALAMINE\FERRIC OXIDE RED\ZINC OXIDE
     Dates: start: 20181011, end: 20181014

REACTIONS (2)
  - Platelet count decreased [Recovered/Resolved]
  - Myelosuppression [Not Recovered/Not Resolved]

NARRATIVE: CASE EVENT DATE: 20181011
